FAERS Safety Report 4680981-1 (Version None)
Quarter: 2005Q2

REPORT INFORMATION
  Report Type: 
  Country: None (occurrence: None)
  Receive Date: 20050601
  Receipt Date: 20050601
  Transmission Date: 20051028
  Serious: Yes (Hospitalization)
  Sender: FDA-Public Use
  Company Number: None

PATIENT
  Age: 29 Year
  Sex: Female
  Weight: 61 kg

DRUGS (8)
  1. NUVARING [Suspect]
     Indication: CONTRACEPTION
     Dates: start: 20050101, end: 20050427
  2. CIPROFLOXACIN HCL [Concomitant]
  3. PROVIGIL [Concomitant]
  4. LEXAPRO [Concomitant]
  5. LORAZEPAM [Concomitant]
  6. GABAPENTIN [Concomitant]
  7. TEGRETOL-XR [Concomitant]
  8. NUVARING VAGINAL CONTRACEPTIVE [Concomitant]

REACTIONS (1)
  - PULMONARY EMBOLISM [None]
